FAERS Safety Report 18600608 (Version 1)
Quarter: 2020Q4

REPORT INFORMATION
  Report Type: Report from Study
  Country: EG (occurrence: EG)
  Receive Date: 20201210
  Receipt Date: 20201210
  Transmission Date: 20210114
  Serious: Yes (Other)
  Sender: FDA-Public Use
  Company Number: NVSC2020EG325505

PATIENT
  Age: 30 Year
  Sex: Female

DRUGS (2)
  1. ENTRESTO [Suspect]
     Active Substance: SACUBITRIL\VALSARTAN
     Dosage: 0.5 DF, BID (100 MG HALF TABLET TWICE DAILY)
     Route: 065
     Dates: start: 202008, end: 20201130
  2. ENTRESTO [Suspect]
     Active Substance: SACUBITRIL\VALSARTAN
     Indication: CARDIAC FAILURE
     Dosage: 0.5 DF, TID (100 MG, HALF TABLET THRICE DAILY)
     Route: 065
     Dates: start: 202006, end: 202008

REACTIONS (7)
  - Product dose omission issue [Unknown]
  - Product prescribing error [Unknown]
  - Syncope [Recovered/Resolved]
  - Angina pectoris [Not Recovered/Not Resolved]
  - Hypotension [Recovered/Resolved]
  - Wrong technique in product usage process [Unknown]
  - Hypotension [Not Recovered/Not Resolved]

NARRATIVE: CASE EVENT DATE: 202006
